FAERS Safety Report 19254414 (Version 1)
Quarter: 2021Q2

REPORT INFORMATION
  Report Type: Spontaneous
  Country: JP (occurrence: JP)
  Receive Date: 20210513
  Receipt Date: 20210513
  Transmission Date: 20210717
  Serious: Yes (Hospitalization, Other)
  Sender: FDA-Public Use
  Company Number: JP-PFIZER INC-2021382350

PATIENT
  Age: 52 Year
  Sex: Female
  Weight: 48.89 kg

DRUGS (23)
  1. REMODULIN [Suspect]
     Active Substance: TREPROSTINIL
     Indication: COLLAGEN DISORDER
     Dosage: 0.088 UG/KG (CONTINUING)
     Route: 041
  2. AMOXICILLIN HYDRATE [Concomitant]
     Active Substance: AMOXICILLIN
     Dosage: UNK
     Dates: start: 20200207, end: 20200214
  3. AUGMENTIN [Concomitant]
     Active Substance: AMOXICILLIN\CLAVULANATE POTASSIUM
     Dosage: UNK
     Dates: start: 20200207, end: 20200214
  4. EPOPROSTENOL [EPOPROSTENOL SODIUM] [Concomitant]
     Active Substance: EPOPROSTENOL SODIUM
     Dosage: 46 NG/KG/MIN
     Dates: start: 20150904, end: 20150925
  5. SELARA [Concomitant]
     Active Substance: EPLERENONE
     Dosage: UNK
     Dates: start: 20171110
  6. ASPARA POTASSIUM [Concomitant]
     Active Substance: POTASSIUM ASPARTATE
     Dosage: UNK
  7. VOLIBRIS [Concomitant]
     Active Substance: AMBRISENTAN
     Dosage: UNK
     Dates: start: 201112
  8. REMODULIN [Suspect]
     Active Substance: TREPROSTINIL
     Indication: PULMONARY ARTERIAL HYPERTENSION
     Dosage: 0.054 UG/KG (CONTINUING)
     Route: 041
     Dates: start: 20150925
  9. REVATIO [Concomitant]
     Active Substance: SILDENAFIL CITRATE
     Indication: PULMONARY HYPERTENSION
     Dosage: UNK
     Dates: start: 200808
  10. REMODULIN [Suspect]
     Active Substance: TREPROSTINIL
     Dosage: 0.079 UG/KG (CONTINUING)
     Route: 041
     Dates: start: 20161007
  11. MOHRUS [Concomitant]
     Active Substance: KETOPROFEN
     Dosage: UNK
  12. ENTERONON?R [Concomitant]
     Active Substance: PROBIOTICS NOS
     Dosage: UNK
  13. FERRUM [FERROUS FUMARATE] [Concomitant]
     Dosage: UNK
  14. REMODULIN [Suspect]
     Active Substance: TREPROSTINIL
     Dosage: 0.083 UG/KG (CONTINUING)
     Route: 041
     Dates: start: 20180924
  15. ULTIBRO BREEZHALER [Concomitant]
     Active Substance: GLYCOPYRRONIUM\INDACATEROL
     Dosage: UNK
     Dates: start: 20161126
  16. ULTIBRO BREEZHALER [Concomitant]
     Active Substance: GLYCOPYRRONIUM\INDACATEROL
     Dosage: UNK
     Dates: start: 20161129
  17. LUPRAC [Concomitant]
     Active Substance: TORSEMIDE
     Dosage: UNK
  18. AUGMENTIN [Concomitant]
     Active Substance: AMOXICILLIN\CLAVULANATE POTASSIUM
     Dosage: UNK
     Dates: start: 20200313, end: 20200323
  19. ZITHROMAC [Suspect]
     Active Substance: AZITHROMYCIN DIHYDRATE
     Dosage: UNK
     Route: 048
  20. REMODULIN [Suspect]
     Active Substance: TREPROSTINIL
     Dosage: 0.097 UG/KG (CONTINUING)
     Route: 041
  21. LOPEMIN FOR CHILDREN [Concomitant]
     Dosage: UNK
  22. MIYA?BM [Concomitant]
     Active Substance: CLOSTRIDIUM BUTYRICUM SPORES STRAIN M-55
     Dosage: UNK
     Dates: start: 20180209
  23. AMOXICILLIN HYDRATE [Concomitant]
     Active Substance: AMOXICILLIN
     Dosage: UNK
     Dates: start: 20200313, end: 20200323

REACTIONS (4)
  - Staphylococcal infection [Unknown]
  - Vascular device infection [Recovered/Resolved]
  - Pneumonia [Recovering/Resolving]
  - Atelectasis [Recovering/Resolving]

NARRATIVE: CASE EVENT DATE: 20171208
